FAERS Safety Report 9416542 (Version 3)
Quarter: 2013Q3

REPORT INFORMATION
  Report Type: Report from Study
  Country: CA (occurrence: CA)
  Receive Date: 20130724
  Receipt Date: 20130902
  Transmission Date: 20140515
  Serious: Yes (Hospitalization)
  Sender: FDA-Public Use
  Company Number: CA-JNJFOC-20130711439

PATIENT
  Age: 63 Year
  Sex: Female
  Weight: 82.1 kg

DRUGS (18)
  1. USTEKINUMAB [Suspect]
     Indication: PSORIASIS
     Route: 058
     Dates: start: 20110415
  2. SINGULAIR [Concomitant]
     Route: 065
  3. ALENDRONATE [Concomitant]
     Route: 065
  4. ATACAND [Concomitant]
     Route: 065
  5. CELEBREX [Concomitant]
     Route: 065
  6. RALIVIA [Concomitant]
     Route: 065
  7. VITAMIN D [Concomitant]
     Route: 065
  8. CHLORTHALIDONE [Concomitant]
     Route: 065
  9. VENTOLIN [Concomitant]
     Route: 045
  10. ADVAIR [Concomitant]
     Route: 045
  11. CLOBETASOL [Concomitant]
     Route: 065
  12. CLOTRIMADERM [Concomitant]
     Route: 065
  13. NIZORAL [Concomitant]
     Route: 065
  14. DESONIDE [Concomitant]
     Route: 065
  15. FLUOCINOLONE ACETONIDE [Concomitant]
     Route: 065
  16. TACROLIMUS [Concomitant]
     Route: 065
  17. SALICYLIC ACID [Concomitant]
     Route: 065
  18. ECTOSONE [Concomitant]
     Route: 065

REACTIONS (1)
  - Atrial fibrillation [Recovered/Resolved]
